FAERS Safety Report 16305299 (Version 1)
Quarter: 2019Q2

REPORT INFORMATION
  Report Type: Spontaneous
  Country: DE (occurrence: DE)
  Receive Date: 20190513
  Receipt Date: 20190513
  Transmission Date: 20190711
  Serious: Yes (Other)
  Sender: FDA-Public Use
  Company Number: DE-MYLANLABS-2019M1044165

PATIENT
  Age: 35 Year
  Sex: Male
  Weight: 100 kg

DRUGS (4)
  1. CITALOPRAM [Concomitant]
     Active Substance: CITALOPRAM HYDROBROMIDE
     Indication: DEPRESSION
     Dosage: UNK
  2. TIMONIL [Suspect]
     Active Substance: CARBAMAZEPINE
     Indication: PARTIAL SEIZURES
     Dosage: 300 MILLIGRAM, BID (600 MG, QD)
     Dates: start: 1992
  3. CARBAMAZEPINE. [Suspect]
     Active Substance: CARBAMAZEPINE
     Indication: PARTIAL SEIZURES
     Dosage: UNK
  4. TIMONIL [Suspect]
     Active Substance: CARBAMAZEPINE
     Dosage: 300 MILLIGRAM, QD (0-0-300)

REACTIONS (4)
  - Folate deficiency [Recovering/Resolving]
  - Vitamin D deficiency [Recovering/Resolving]
  - Depression [Unknown]
  - Vitamin B12 deficiency [Recovering/Resolving]

NARRATIVE: CASE EVENT DATE: 2008
